FAERS Safety Report 10095120 (Version 1)
Quarter: 2014Q2

REPORT INFORMATION
  Report Type: Spontaneous
  Country: US (occurrence: US)
  Receive Date: 20140422
  Receipt Date: 20140422
  Transmission Date: 20141212
  Serious: No
  Sender: FDA-Public Use
  Company Number: US-GILEAD-2012-0057382

PATIENT
  Sex: Female

DRUGS (1)
  1. LETAIRIS [Suspect]
     Indication: PRODUCT USED FOR UNKNOWN INDICATION
     Dosage: 5 MG, UNK
     Route: 048
     Dates: start: 20120404

REACTIONS (8)
  - Allergy to chemicals [Unknown]
  - Diarrhoea [Unknown]
  - Arthralgia [Unknown]
  - Swelling [Unknown]
  - Pain [Unknown]
  - Hot flush [Unknown]
  - Headache [Unknown]
  - Vomiting [Unknown]
